FAERS Safety Report 4505847-9 (Version None)
Quarter: 2004Q4

REPORT INFORMATION
  Report Type: 
  Country: None (occurrence: None)
  Receive Date: 20041025
  Receipt Date: 20040409
  Transmission Date: 20050328
  Serious: Yes (Hospitalization, Other)
  Sender: FDA-Public Use
  Company Number: US-JNJFOC-20040303932

PATIENT
  Age: 48 Year
  Sex: Female

DRUGS (5)
  1. REMICADE [Suspect]
     Indication: RHEUMATOID ARTHRITIS
     Dosage: INTRAVENOUS
     Route: 042
     Dates: start: 20040201, end: 20040305
  2. METHOTREXATE [Concomitant]
  3. CELEBREX [Concomitant]
  4. CELEXA [Concomitant]
  5. ESTROGEN (ESTROGEN NOS) [Concomitant]

REACTIONS (1)
  - HEPATITIS B [None]
